FAERS Safety Report 8480724-X (Version None)
Quarter: 2012Q3

REPORT INFORMATION
  Report Type: 
  Country: None (occurrence: None)
  Receive Date: 20120702
  Receipt Date: 20120624
  Transmission Date: 20120928
  Serious: Yes (Other)
  Sender: FDA-Public Use
  Company Number: IT-DENTSPLY-2012SCDP002954

PATIENT
  Sex: Female

DRUGS (1)
  1. ARTICAINE WITH ADRENALINE HCL [Suspect]
     Indication: LOCAL ANAESTHESIA
     Dosage: UNK
     Route: 004

REACTIONS (1)
  - MUCOSAL NECROSIS [None]
